FAERS Safety Report 19042027 (Version 2)
Quarter: 2021Q2

REPORT INFORMATION
  Report Type: Spontaneous
  Country: AR (occurrence: AR)
  Receive Date: 20210323
  Receipt Date: 20210405
  Transmission Date: 20210717
  Serious: Yes (Other)
  Sender: FDA-Public Use
  Company Number: NVSC2021AR065374

PATIENT
  Age: 65 Year
  Sex: Male

DRUGS (1)
  1. TEGRETOL [Suspect]
     Active Substance: CARBAMAZEPINE
     Indication: EPILEPSY
     Dosage: 2 DF, QD (STARTED 4 YEARS AGO)
     Route: 065

REACTIONS (4)
  - Seizure [Unknown]
  - Abdominal discomfort [Recovering/Resolving]
  - Coeliac disease [Unknown]
  - Product availability issue [Unknown]

NARRATIVE: CASE EVENT DATE: 20210313
